FAERS Safety Report 23755111 (Version 4)
Quarter: 2025Q3

REPORT INFORMATION
  Report Type: Report from Study
  Country: US (occurrence: US)
  Receive Date: 20240418
  Receipt Date: 20250816
  Transmission Date: 20251021
  Serious: Yes (Hospitalization, Other)
  Sender: ALEXION PHARMACEUTICALS
  Company Number: US-ALXN-202404GLO000744US

PATIENT
  Age: 67 Year
  Sex: Male

DRUGS (24)
  1. SOLIRIS [Suspect]
     Active Substance: ECULIZUMAB
     Indication: Myasthenia gravis
     Route: 065
     Dates: start: 20200921, end: 20201012
  2. SOLIRIS [Suspect]
     Active Substance: ECULIZUMAB
     Route: 065
     Dates: start: 20201019, end: 20220615
  3. SOLIRIS [Suspect]
     Active Substance: ECULIZUMAB
     Route: 065
     Dates: start: 20220615, end: 20240515
  4. SOLIRIS [Suspect]
     Active Substance: ECULIZUMAB
     Route: 065
  5. ULTOMIRIS [Suspect]
     Active Substance: RAVULIZUMAB-CWVZ
     Indication: Myasthenia gravis
     Route: 065
     Dates: start: 20220629, end: 20220629
  6. ULTOMIRIS [Suspect]
     Active Substance: RAVULIZUMAB-CWVZ
     Route: 065
     Dates: start: 20220713, end: 20240320
  7. ULTOMIRIS [Suspect]
     Active Substance: RAVULIZUMAB-CWVZ
     Route: 065
  8. CYANOCOBALAMIN [Concomitant]
     Active Substance: CYANOCOBALAMIN
     Indication: Anaemia
     Dosage: 1000 MICROGRAM, QW
     Dates: start: 20221004
  9. HYDROCODONE BITARTRATE AND ACETAMINOPHEN [Concomitant]
     Active Substance: ACETAMINOPHEN\HYDROCODONE BITARTRATE
     Indication: Arthritis reactive
     Dates: start: 20230524, end: 20230524
  10. HYDROCODONE BITARTRATE AND ACETAMINOPHEN [Concomitant]
     Active Substance: ACETAMINOPHEN\HYDROCODONE BITARTRATE
     Indication: Pain
  11. CEFPODOXIME [Concomitant]
     Active Substance: CEFPODOXIME
     Indication: Infection
     Dosage: 200 MILLIGRAM, BID
     Dates: start: 20230527, end: 20240506
  12. FAMOTIDINE [Concomitant]
     Active Substance: FAMOTIDINE
     Indication: Dyspepsia
     Dosage: 40 MILLIGRAM, BID
     Dates: start: 20230527, end: 20240409
  13. METRONIDAZOLE [Concomitant]
     Active Substance: METRONIDAZOLE
     Indication: Diarrhoea
     Dosage: 500 MILLIGRAM, TID
     Dates: start: 20230527, end: 20230527
  14. PREDNISONE [Concomitant]
     Active Substance: PREDNISONE
     Indication: Arthritis reactive
     Dosage: 20 MILLIGRAM, QD FOR 14 DAYS
     Dates: start: 20230527
  15. PREDNISONE [Concomitant]
     Active Substance: PREDNISONE
  16. Dexamethasone;Neomycin sulfate;Polymyxin b [Concomitant]
  17. BUPROPION [Concomitant]
     Active Substance: BUPROPION
     Indication: Depression
  18. DIOVAN HCT [Concomitant]
     Active Substance: HYDROCHLOROTHIAZIDE\VALSARTAN
     Dosage: 160-12.5 MILLIGRAM, QD
     Dates: start: 20230914
  19. KETOCONAZOLE [Concomitant]
     Active Substance: KETOCONAZOLE
     Dosage: 2 PERCENT, QW
     Dates: start: 20231023
  20. TRAZODONE [Concomitant]
     Active Substance: TRAZODONE HYDROCHLORIDE
     Indication: Insomnia
     Dosage: 90 MILLIGRAM, QD
     Dates: start: 20231220
  21. ADDERALL [Concomitant]
     Active Substance: AMPHETAMINE ASPARTATE\AMPHETAMINE SULFATE\DEXTROAMPHETAMINE SACCHARATE\DEXTROAMPHETAMINE SULFATE
     Dosage: 20 MILLIGRAM, QD
     Dates: start: 20240215
  22. MELOXICAM [Concomitant]
     Active Substance: MELOXICAM
     Indication: Pain
     Dates: start: 20240402
  23. ATORVASTATIN [Concomitant]
     Active Substance: ATORVASTATIN
     Indication: Type V hyperlipidaemia
     Dosage: 40 MILLIGRAM, QD
     Dates: start: 20240405
  24. DAPAGLIFLOZIN [Concomitant]
     Active Substance: DAPAGLIFLOZIN
     Indication: Chronic kidney disease
     Dosage: 5 MILLIGRAM, QD
     Dates: start: 20230527

REACTIONS (1)
  - Arthritis bacterial [Recovered/Resolved]

NARRATIVE: CASE EVENT DATE: 20240404
